FAERS Safety Report 9644076 (Version 3)
Quarter: 2013Q4

REPORT INFORMATION
  Report Type: Spontaneous
  Country: FR (occurrence: FR)
  Receive Date: 20131024
  Receipt Date: 20131206
  Transmission Date: 20140711
  Serious: Yes (Hospitalization, Other)
  Sender: FDA-Public Use
  Company Number: FR-ALLERGAN-1316594US

PATIENT
  Sex: Male

DRUGS (18)
  1. BOTOX [Suspect]
     Indication: MUSCLE SPASTICITY
     Dosage: 50 UNITS, SINGLE
     Route: 030
     Dates: start: 20130917, end: 20130917
  2. BOTOX [Suspect]
     Dosage: 200 UNK, UNK
     Dates: start: 20110705, end: 20110705
  3. BOTOX [Suspect]
     Dosage: 300 UNK, UNK
     Dates: start: 20110405, end: 20110405
  4. BOTOX [Suspect]
     Dosage: 300 UNK, UNK
     Dates: start: 20110104, end: 20110104
  5. BOTOX [Suspect]
     Dosage: 400 UNK, UNK
     Dates: start: 20100622, end: 20100622
  6. BOTOX [Suspect]
     Dosage: 300 UNK, UNK
     Dates: start: 20100921, end: 20100921
  7. BOTOX [Suspect]
     Dosage: 200 UNK, UNK
     Dates: start: 20091216, end: 20091216
  8. BOTOX [Suspect]
     Dosage: 300 UNK, UNK
     Dates: start: 20090909, end: 20090909
  9. BOTOX [Suspect]
     Dosage: 250 UNK, UNK
     Dates: start: 20090113, end: 20090113
  10. BOTOX [Suspect]
     Dosage: 400 UNK, UNK
     Dates: start: 20080908, end: 20080908
  11. INEXIUM [Concomitant]
     Indication: PEPTIC ULCER
     Dosage: 20 MG, UNK
     Route: 048
     Dates: start: 2008
  12. ZYLORIC [Concomitant]
     Indication: GOUT
  13. KEPPRA [Concomitant]
     Indication: CONVULSION
     Dosage: 500 MG, BID
     Dates: start: 2008
  14. ATENOLOL [Concomitant]
     Indication: HYPERTENSION
     Dosage: 1 DF, QD
     Route: 048
  15. GABAPENTIN [Concomitant]
     Indication: NEURALGIA
     Dosage: 400 MG, BID
     Dates: start: 2008
  16. TIAPRIDAL [Concomitant]
     Indication: ABNORMAL BEHAVIOUR
     Dosage: UNK
     Dates: start: 2012
  17. CYMBALTA [Concomitant]
     Dosage: 60 MG, UNK
     Route: 048
  18. TOPALGIC LP [Concomitant]
     Dosage: 200 MG, UNK
     Route: 048

REACTIONS (4)
  - Upper limb fracture [Not Recovered/Not Resolved]
  - Fall [Unknown]
  - Off label use [Unknown]
  - Muscular weakness [Unknown]
